FAERS Safety Report 22245763 (Version 1)
Quarter: 2023Q2

REPORT INFORMATION
  Report Type: Spontaneous
  Country: US (occurrence: None)
  Receive Date: 20230421
  Receipt Date: 20230421
  Transmission Date: 20230721
  Serious: Yes (Hospitalization)
  Sender: FDA-Public Use
  Company Number: None

PATIENT
  Sex: Male
  Weight: 72.1 kg

DRUGS (1)
  1. CISPLATIN [Suspect]
     Active Substance: CISPLATIN
     Dates: end: 20230322

REACTIONS (6)
  - Haemoglobin decreased [None]
  - Anorectal infection [None]
  - Upper gastrointestinal haemorrhage [None]
  - Hypernatraemia [None]
  - Blood magnesium increased [None]
  - Rectal lesion [None]

NARRATIVE: CASE EVENT DATE: 20230401
